FAERS Safety Report 7264420-2 (Version None)
Quarter: 2011Q1

REPORT INFORMATION
  Report Type: 
  Country: None (occurrence: None)
  Receive Date: 20110131
  Receipt Date: 20110121
  Transmission Date: 20110831
  Serious: Yes (Other)
  Sender: FDA-Public Use
  Company Number: US-RB-019622-11

PATIENT
  Age: 17 Year
  Sex: Male

DRUGS (1)
  1. DELSYM GRAPE COUGH SYRUP [Suspect]
     Dosage: PATIENT DRANK 3 OZ ONCE
     Route: 048

REACTIONS (3)
  - AGITATION [None]
  - OVERDOSE [None]
  - MYDRIASIS [None]
